FAERS Safety Report 17578516 (Version 1)
Quarter: 2020Q1

REPORT INFORMATION
  Report Type: Spontaneous
  Country: US (occurrence: US)
  Receive Date: 20200324
  Receipt Date: 20200324
  Transmission Date: 20200409
  Serious: No
  Sender: FDA-Public Use
  Company Number: US-AMAG PHARMACEUTICALS, INC.-AMAG202000983

PATIENT
  Age: 67 Year
  Sex: Female
  Weight: 63.56 kg

DRUGS (2)
  1. VYLEESI [Suspect]
     Active Substance: BREMELANOTIDE ACETATE
     Indication: LIBIDO DECREASED
  2. VYLEESI [Suspect]
     Active Substance: BREMELANOTIDE ACETATE
     Indication: LIBIDO DECREASED
     Dosage: NDC# 64011-701-04
     Route: 058

REACTIONS (2)
  - Injection site bruising [Not Recovered/Not Resolved]
  - Injection site extravasation [Recovered/Resolved]
